FAERS Safety Report 11303400 (Version 1)
Quarter: 2015Q3

REPORT INFORMATION
  Report Type: Spontaneous
  Country: US (occurrence: US)
  Receive Date: 20150723
  Receipt Date: 20150723
  Transmission Date: 20151125
  Serious: No
  Sender: FDA-Public Use
  Company Number: US-JNJFOC-20150115055

PATIENT
  Age: 81 Year
  Sex: Male
  Weight: 95.26 kg

DRUGS (6)
  1. MIRTAZAPINE. [Concomitant]
     Active Substance: MIRTAZAPINE
     Indication: PRODUCT USED FOR UNKNOWN INDICATION
     Dosage: YEARS
     Route: 065
  2. ZYRTEC [Suspect]
     Active Substance: CETIRIZINE HYDROCHLORIDE
     Route: 048
  3. ZYRTEC [Suspect]
     Active Substance: CETIRIZINE HYDROCHLORIDE
     Indication: NASAL CONGESTION
     Dosage: 1 TABLET, NIGHTLY ABOUT 2 1/1 WEEKS
     Route: 048
  4. LISINOPRIL. [Concomitant]
     Active Substance: LISINOPRIL
     Indication: PRODUCT USED FOR UNKNOWN INDICATION
     Dosage: YEARS
     Route: 065
  5. ALL OTHER THERAPEUTIC PRODUCTS [Concomitant]
     Active Substance: UNSPECIFIED INGREDIENT
     Indication: PROSTATIC DISORDER
     Dosage: YEARS
     Route: 065
  6. PROPRANOLOL [Concomitant]
     Active Substance: PROPRANOLOL\PROPRANOLOL HYDROCHLORIDE
     Indication: PRODUCT USED FOR UNKNOWN INDICATION
     Dosage: YEARS
     Route: 065

REACTIONS (3)
  - Drug ineffective for unapproved indication [Unknown]
  - Product use issue [Unknown]
  - Product packaging issue [Unknown]
